FAERS Safety Report 8607852 (Version 3)
Quarter: 2013Q3

REPORT INFORMATION
  Report Type: Spontaneous
  Country: US (occurrence: US)
  Receive Date: 20120611
  Receipt Date: 20130925
  Transmission Date: 20140515
  Serious: Yes (Hospitalization, Disabling, Other)
  Sender: FDA-Public Use
  Company Number: US-ASTRAZENECA-2012SE35181

PATIENT
  Age: 39 Year
  Sex: Male
  Weight: 94.8 kg

DRUGS (23)
  1. VIOXX [Concomitant]
     Dates: start: 20010820
  2. HYDROCO/APAP/NORCO [Concomitant]
     Indication: PAIN
     Dosage: 5-500 MG FOUR TO SIX HOURS AS NEEDED
     Dates: start: 20011015
  3. GUIAFENESIN [Concomitant]
     Dates: start: 20020225
  4. HYOSCYAMINE [Concomitant]
     Dosage: 0.125 MG TAKE ONE TABLET EVERY TWO HOURS AS NEEDED
     Dates: start: 20020329
  5. ESGIC [Concomitant]
     Indication: PAIN
     Dosage: ONE CAPSULE
     Dates: start: 20110715
  6. PROZAC [Concomitant]
     Dates: start: 20110715
  7. STRIANT [Concomitant]
     Route: 048
     Dates: start: 20110715
  8. TAGAMET [Concomitant]
     Indication: GASTRITIS
     Dates: start: 1989
  9. TUMS [Concomitant]
  10. FENTANYL [Concomitant]
     Dates: start: 20111229
  11. VITAMIN D [Concomitant]
     Dates: start: 20111229
  12. TIZANIDINE [Concomitant]
     Dates: start: 20111229
  13. METHYLPREDNISOLONE [Concomitant]
     Dates: start: 20111128
  14. TOPROL XL [Concomitant]
  15. MORPHINE [Concomitant]
  16. NEXIUM [Suspect]
     Indication: HIATUS HERNIA
     Route: 048
     Dates: start: 20010918
  17. NEXIUM [Suspect]
     Indication: HIATUS HERNIA
     Route: 048
     Dates: start: 20010918, end: 20020407
  18. NEXIUM [Suspect]
     Indication: HIATUS HERNIA
     Route: 048
     Dates: start: 20010918
  19. OMEPRAZOLE [Suspect]
     Route: 048
     Dates: start: 20070619
  20. OMEPRAZOLE [Suspect]
     Route: 048
     Dates: start: 200708, end: 20090618
  21. PREVACID [Suspect]
     Route: 065
     Dates: start: 20010130, end: 20010514
  22. PREVACID [Suspect]
     Route: 065
     Dates: start: 20020329
  23. PREVACID [Suspect]
     Route: 065
     Dates: start: 20010130

REACTIONS (16)
  - Osteoporosis [Unknown]
  - Multiple fractures [Unknown]
  - Back pain [Unknown]
  - Cardiac disorder [Unknown]
  - Gallbladder disorder [Unknown]
  - Spinal cord disorder [Unknown]
  - Spinal compression fracture [Unknown]
  - Bone density decreased [Unknown]
  - Extraskeletal ossification [Unknown]
  - Arthritis [Unknown]
  - Androgen deficiency [Unknown]
  - Osteoarthritis [Unknown]
  - Fibromyalgia [Unknown]
  - Muscle spasms [Unknown]
  - Spinal osteoarthritis [Unknown]
  - Depression [Unknown]
